FAERS Safety Report 8060600-7 (Version None)
Quarter: 2012Q1

REPORT INFORMATION
  Report Type: 
  Country: None (occurrence: None)
  Receive Date: 20120120
  Receipt Date: 20120113
  Transmission Date: 20120608
  Serious: Yes (Other)
  Sender: FDA-Public Use
  Company Number: DE-B.I. PHARMACEUTICALS,INC./RIDGEFIELD-2012-DE-00118DE

PATIENT
  Age: 86 Year
  Sex: Female
  Weight: 85 kg

DRUGS (5)
  1. PRADAXA [Suspect]
     Indication: ATRIAL FIBRILLATION
     Dosage: 150 MG
     Dates: start: 20111007, end: 20111008
  2. PRADAXA [Suspect]
     Dosage: 220 MG
     Dates: start: 20111009, end: 20111009
  3. FRAXIPARIN [Concomitant]
     Indication: ATRIAL THROMBOSIS
     Dates: start: 20111001
  4. PRADAXA [Suspect]
     Dosage: 220 MG
  5. PRADAXA [Suspect]
     Dosage: 300 MG
     Dates: start: 20111010

REACTIONS (3)
  - EMBOLISM ARTERIAL [None]
  - GANGRENE [None]
  - TRANSAMINASES INCREASED [None]
